FAERS Safety Report 6974831-8 (Version None)
Quarter: 2010Q3

REPORT INFORMATION
  Report Type: 
  Country: None (occurrence: None)
  Receive Date: 20100909
  Receipt Date: 20090203
  Transmission Date: 20110219
  Serious: No
  Sender: FDA-Public Use
  Company Number: US-WYE-H07204008

PATIENT
  Sex: Female

DRUGS (5)
  1. PRISTIQ [Suspect]
     Indication: ANXIETY
     Route: 048
     Dates: start: 20081108, end: 20081110
  2. PRISTIQ [Suspect]
     Route: 048
     Dates: start: 20081127, end: 20080101
  3. PRISTIQ [Suspect]
     Route: 048
     Dates: start: 20081206, end: 20081206
  4. XANAX [Concomitant]
  5. DICYCLOVERINE HYDROCHLORIDE [Concomitant]

REACTIONS (2)
  - DIZZINESS [None]
  - NAUSEA [None]
